FAERS Safety Report 17846100 (Version 1)
Quarter: 2020Q2

REPORT INFORMATION
  Report Type: Spontaneous
  Country: US (occurrence: US)
  Receive Date: 20200531
  Receipt Date: 20200531
  Transmission Date: 20200714
  Serious: Yes (Disabling, Other)
  Sender: FDA-Public Use
  Company Number: None

PATIENT
  Age: 53 Year
  Sex: Female
  Weight: 67.5 kg

DRUGS (7)
  1. TRAZODONE [Concomitant]
     Active Substance: TRAZODONE HYDROCHLORIDE
  2. VITAMIN B/CALCIUM/D-FIBER [Concomitant]
  3. CYMBALTA [Suspect]
     Active Substance: DULOXETINE HYDROCHLORIDE
  4. VITAMIN C [Concomitant]
     Active Substance: ASCORBIC ACID
  5. CIPRO [Suspect]
     Active Substance: CIPROFLOXACIN HYDROCHLORIDE
     Indication: URINARY TRACT INFECTION
     Dosage: ?          QUANTITY:1 TABLET(S);?
     Route: 048
     Dates: start: 20150525, end: 20150527
  6. FISH OIL [Concomitant]
     Active Substance: FISH OIL
  7. VITAMIN D [Concomitant]
     Active Substance: VITAMIN D NOS

REACTIONS (15)
  - Abdominal pain [None]
  - Headache [None]
  - Ocular discomfort [None]
  - Dysphagia [None]
  - Asthenia [None]
  - Liver injury [None]
  - Fatigue [None]
  - Pain in extremity [None]
  - Spondylolisthesis [None]
  - Pain [None]
  - Dizziness [None]
  - Malaise [None]
  - Back pain [None]
  - Stridor [None]
  - Nausea [None]

NARRATIVE: CASE EVENT DATE: 20150525
